FAERS Safety Report 9423617 (Version 3)
Quarter: 2013Q3

REPORT INFORMATION
  Report Type: Spontaneous
  Country: US (occurrence: US)
  Receive Date: 20130726
  Receipt Date: 20130807
  Transmission Date: 20140515
  Serious: Yes (Other)
  Sender: FDA-Public Use
  Company Number: PHHY2013US079302

PATIENT
  Age: 79 Year
  Sex: Male

DRUGS (4)
  1. BACLOFEN INTRATHECAL [Suspect]
     Indication: BACK PAIN
     Dosage: 161.13 UG, DAILY
     Route: 037
  2. CLONIDINE [Suspect]
     Dosage: 80.56 UG, DAILY
     Route: 037
  3. DILAUDID [Suspect]
     Dosage: 2.148 MG, DAILY
     Route: 037
  4. BUPIVACAINE [Suspect]
     Dosage: 12.89 MG, DAILY
     Route: 037

REACTIONS (1)
  - Pain [Unknown]
